FAERS Safety Report 8990790 (Version 2)
Quarter: 2013Q1

REPORT INFORMATION
  Report Type: Other
  Country: FR (occurrence: FR)
  Receive Date: 20121231
  Receipt Date: 20130211
  Transmission Date: 20140127
  Serious: Yes (Death)
  Sender: FDA-Public Use
  Company Number: FR-MPIJNJ-2012-09239

PATIENT
  Sex: 0

DRUGS (5)
  1. VELCADE [Suspect]
     Indication: PRODUCT USED FOR UNKNOWN INDICATION
     Dosage: 1 MG/M2, CYCLIC
     Route: 042
  2. VELCADE [Suspect]
     Dosage: 0.75 MG/M2, CYCLIC
     Route: 042
     Dates: start: 200912
  3. VELCADE [Suspect]
     Dosage: 1 MG/M2, CYCLIC
     Route: 042
     Dates: start: 201101, end: 201103
  4. DEXAMETHASONE [Concomitant]
     Dosage: 20 MG, 1/WEEK
     Dates: start: 200911
  5. BENDAMUSTINE [Concomitant]
     Dosage: 120 MG/M2, UNK

REACTIONS (1)
  - Acute myeloid leukaemia [Fatal]
